FAERS Safety Report 17618446 (Version 1)
Quarter: 2020Q2

REPORT INFORMATION
  Report Type: Spontaneous
  Country: US (occurrence: US)
  Receive Date: 20200402
  Receipt Date: 20200402
  Transmission Date: 20200713
  Serious: No
  Sender: FDA-Public Use
  Company Number: US-ROCHE-2377830

PATIENT
  Sex: Male

DRUGS (5)
  1. RAMIPRIL. [Concomitant]
     Active Substance: RAMIPRIL
  2. WARFARIN SODIUM. [Concomitant]
     Active Substance: WARFARIN SODIUM
  3. DIGOXIN. [Concomitant]
     Active Substance: DIGOXIN
  4. VITAMIN C [Concomitant]
     Active Substance: ASCORBIC ACID
  5. ERIVEDGE [Suspect]
     Active Substance: VISMODEGIB
     Indication: BASAL CELL CARCINOMA
     Route: 048

REACTIONS (2)
  - Muscle spasms [Unknown]
  - Decreased appetite [Unknown]
